FAERS Safety Report 7587189-0 (Version None)
Quarter: 2011Q3

REPORT INFORMATION
  Report Type: 
  Country: None (occurrence: None)
  Receive Date: 20110701
  Receipt Date: 20110620
  Transmission Date: 20111222
  Serious: Yes (Other)
  Sender: FDA-Public Use
  Company Number: CHPA2011US08171

PATIENT
  Age: 66 Year
  Sex: Female

DRUGS (2)
  1. PREVACID 24 HR [Suspect]
     Dosage: 15 MG, FIRST USE
     Route: 048
     Dates: start: 20110617
  2. IRBESARTAN + HYDROCHLOROTHIAZIDE [Suspect]
     Indication: HYPERTENSION
     Dosage: UNK
     Route: 048

REACTIONS (4)
  - HYPERSENSITIVITY [None]
  - NAUSEA [None]
  - DIZZINESS [None]
  - GLOSSODYNIA [None]
